FAERS Safety Report 6752716-X (Version None)
Quarter: 2010Q2

REPORT INFORMATION
  Report Type: 
  Country: None (occurrence: None)
  Receive Date: 20100602
  Receipt Date: 20100525
  Transmission Date: 20101027
  Serious: Yes (Other)
  Sender: FDA-Public Use
  Company Number: US-AMGEN-QUU414461

PATIENT
  Sex: Male

DRUGS (4)
  1. NPLATE [Suspect]
     Indication: IDIOPATHIC THROMBOCYTOPENIC PURPURA
     Dates: start: 20091111, end: 20091113
  2. NPLATE [Suspect]
     Indication: PROSTATE CANCER
  3. CORTICOSTEROIDS [Concomitant]
     Dates: start: 20091110
  4. IMMU-G [Concomitant]
     Route: 042
     Dates: start: 20091110

REACTIONS (2)
  - IDIOPATHIC THROMBOCYTOPENIC PURPURA [None]
  - PROSTATE CANCER [None]
